FAERS Safety Report 5411323-1 (Version None)
Quarter: 2007Q3

REPORT INFORMATION
  Report Type: 
  Country: None (occurrence: None)
  Receive Date: 20070810
  Receipt Date: 20070806
  Transmission Date: 20080115
  Serious: Yes (Other)
  Sender: FDA-Public Use
  Company Number: US-SANOFI-SYNTHELABO-A03200702233

PATIENT
  Age: 41 Year
  Sex: Male

DRUGS (3)
  1. CYMBALTA [Concomitant]
     Dosage: UNK
     Route: 065
  2. AMBIEN [Suspect]
     Indication: INSOMNIA
     Route: 048
     Dates: start: 20040801, end: 20051001
  3. AMBIEN [Suspect]
     Route: 048
     Dates: start: 20070101, end: 20070303

REACTIONS (5)
  - ABNORMAL BEHAVIOUR [None]
  - AMNESIA [None]
  - EATING DISORDER [None]
  - ROAD TRAFFIC ACCIDENT [None]
  - SOMNOLENCE [None]
